FAERS Safety Report 6731744-4 (Version None)
Quarter: 2010Q2

REPORT INFORMATION
  Report Type: 
  Country: None (occurrence: None)
  Receive Date: 20100519
  Receipt Date: 20100507
  Transmission Date: 20101027
  Serious: Yes (Death, Other)
  Sender: FDA-Public Use
  Company Number: JP-PFIZER INC-2010034171

PATIENT
  Age: 80 Year
  Sex: Male

DRUGS (3)
  1. SULPERAZON [Suspect]
     Indication: CHOLANGITIS SUPPURATIVE
     Dosage: UNK
     Route: 042
     Dates: start: 20100228, end: 20100228
  2. SULPERAZON [Suspect]
     Indication: BILE DUCT STONE
  3. SOLULACT [Concomitant]
     Dosage: 500 ML, UNK
     Route: 042
     Dates: start: 20100228, end: 20100228

REACTIONS (2)
  - ANAPHYLACTIC SHOCK [None]
  - HYPOXIC ENCEPHALOPATHY [None]
